FAERS Safety Report 5953977-7 (Version None)
Quarter: 2008Q4

REPORT INFORMATION
  Report Type: 
  Country: None (occurrence: None)
  Receive Date: 20081114
  Receipt Date: 20081103
  Transmission Date: 20090506
  Serious: Yes (Other)
  Sender: FDA-Public Use
  Company Number: BR-PFIZER INC-2008093193

PATIENT
  Sex: Female

DRUGS (2)
  1. DOSTINEX [Suspect]
     Indication: SUPPRESSED LACTATION
     Route: 048
     Dates: start: 20081001
  2. ALL OTHER THERAPEUTIC PRODUCTS [Concomitant]
     Route: 065

REACTIONS (3)
  - DIZZINESS [None]
  - HYPERSENSITIVITY [None]
  - MALAISE [None]
